FAERS Safety Report 7421105-7 (Version None)
Quarter: 2011Q2

REPORT INFORMATION
  Report Type: 
  Country: None (occurrence: None)
  Receive Date: 20110418
  Receipt Date: 20110412
  Transmission Date: 20111010
  Serious: No
  Sender: FDA-Public Use
  Company Number: BR-PFIZER INC-2011057573

PATIENT
  Sex: Female

DRUGS (3)
  1. WELLBUTRIN [Concomitant]
     Indication: DEPRESSION
     Dosage: UNK
     Dates: start: 20110201
  2. LEVOTHYROXINE SODIUM [Concomitant]
     Indication: THYROID DISORDER
     Dosage: 100 MG, UNK
  3. PRISTIQ [Suspect]
     Indication: DEPRESSION
     Dosage: 50 MG, UNK
     Route: 048
     Dates: start: 20110201

REACTIONS (2)
  - CONSTIPATION [None]
  - MUCOSAL DRYNESS [None]
